FAERS Safety Report 9129650 (Version 1)
Quarter: 2013Q1

REPORT INFORMATION
  Report Type: Report from Study
  Country: GB (occurrence: GB)
  Receive Date: 20130125
  Receipt Date: 20130125
  Transmission Date: 20140127
  Serious: Yes (Hospitalization)
  Sender: FDA-Public Use
  Company Number: GB-ABBOTT-13P-167-1039985-00

PATIENT
  Age: 25 Year
  Sex: Female

DRUGS (8)
  1. HUMIRA [Suspect]
     Indication: RHEUMATOID ARTHRITIS
     Dosage: EVERY SUNDAY
     Route: 058
     Dates: start: 20120415
  2. LEFLUNOMIDE [Concomitant]
     Indication: RHEUMATOID ARTHRITIS
  3. METHOTREXATE [Concomitant]
     Indication: RHEUMATOID ARTHRITIS
     Dosage: ON FRIDAYS
  4. METHOTREXATE [Concomitant]
     Indication: PRODUCT USED FOR UNKNOWN INDICATION
  5. CHLOROHYDROXYQUINE [Concomitant]
     Indication: RHEUMATOID ARTHRITIS
  6. ORAL STEROIDS [Concomitant]
     Indication: RHEUMATOID ARTHRITIS
     Route: 048
  7. PREDNISOLONE [Concomitant]
     Indication: PRODUCT USED FOR UNKNOWN INDICATION
  8. MESALAZINE [Concomitant]
     Indication: PRODUCT USED FOR UNKNOWN INDICATION

REACTIONS (8)
  - Frequent bowel movements [Unknown]
  - Colitis ulcerative [Recovered/Resolved]
  - Abdominal pain upper [Recovered/Resolved]
  - Nausea [Unknown]
  - Diarrhoea [Unknown]
  - Abdominal pain [Unknown]
  - Pancreatitis acute [Unknown]
  - Inflammatory bowel disease [Unknown]
